FAERS Safety Report 8891415 (Version 1)
Quarter: 2012Q4

REPORT INFORMATION
  Report Type: Spontaneous
  Country: US (occurrence: None)
  Receive Date: 20121105
  Receipt Date: 20121105
  Transmission Date: 20130627
  Serious: Yes (Hospitalization)
  Sender: FDA-Public Use
  Company Number: None

PATIENT
  Age: 79 Year
  Sex: Male
  Weight: 67.3 kg

DRUGS (1)
  1. ASPIRIN\DIPYRIDAMOLE [Suspect]
     Indication: CEREBROVASCULAR ACCIDENT PROPHYLAXIS
     Dosage: 1 TAB BID PO
     Route: 048
     Dates: start: 20090630, end: 20121001

REACTIONS (2)
  - Subdural haematoma [None]
  - Haemorrhage intracranial [None]
